FAERS Safety Report 6861402-7 (Version None)
Quarter: 2010Q3

REPORT INFORMATION
  Report Type: 
  Country: None (occurrence: None)
  Receive Date: 20100716
  Receipt Date: 20100707
  Transmission Date: 20110219
  Serious: Yes (Other)
  Sender: FDA-Public Use
  Company Number: 2010SP029454

PATIENT
  Age: 31 Year
  Sex: Female

DRUGS (5)
  1. IMPLANON [Suspect]
     Indication: PRODUCT USED FOR UNKNOWN INDICATION
     Dosage: 1 DF;
  2. CLARAVIS [Suspect]
     Indication: PRODUCT USED FOR UNKNOWN INDICATION
     Dates: end: 20100325
  3. ACCUTANE [Suspect]
     Indication: ACNE CYSTIC
     Dosage: 40 MG; BID;
     Dates: start: 20091204, end: 20100325
  4. IBUPROFEN TABLETS [Concomitant]
  5. L-LYSINE [Concomitant]

REACTIONS (4)
  - ALOPECIA [None]
  - FATIGUE [None]
  - HEPATIC FUNCTION ABNORMAL [None]
  - METRORRHAGIA [None]
